FAERS Safety Report 8836158 (Version 1)
Quarter: 2012Q4

REPORT INFORMATION
  Report Type: Report from Study
  Country: ES (occurrence: ES)
  Receive Date: 20121011
  Receipt Date: 20121011
  Transmission Date: 20130627
  Serious: Yes (Hospitalization)
  Sender: FDA-Public Use
  Company Number: ES-JNJFOC-20121003801

PATIENT
  Age: 58 Year
  Sex: Male
  Weight: 90 kg

DRUGS (6)
  1. USTEKINUMAB [Suspect]
     Indication: PSORIASIS
     Route: 058
     Dates: start: 20120517, end: 20120620
  2. METHOTREXATE [Concomitant]
     Route: 065
  3. PROTON-PUMP INHIBITOR [Concomitant]
     Route: 065
  4. ANGIOTENSIN RECEPTOR BLOCKER NOS [Concomitant]
     Route: 065
  5. ANTIDIABETICS [Concomitant]
     Route: 065
  6. DACORTIN [Concomitant]
     Route: 065

REACTIONS (1)
  - Pneumonia [Recovered/Resolved]
